FAERS Safety Report 9452445 (Version 2)
Quarter: 2013Q3

REPORT INFORMATION
  Report Type: Report from Study
  Country: JP (occurrence: JP)
  Receive Date: 20130812
  Receipt Date: 20130812
  Transmission Date: 20140515
  Serious: No
  Sender: FDA-Public Use
  Company Number: JP-JNJFOC-20130708866

PATIENT
  Age: 24 Year
  Sex: Male
  Weight: 87 kg

DRUGS (27)
  1. STELARA [Suspect]
     Indication: PSORIASIS
     Route: 058
     Dates: start: 20111228, end: 20111228
  2. STELARA [Suspect]
     Indication: PSORIASIS
     Route: 058
     Dates: start: 20121114, end: 20121114
  3. STELARA [Suspect]
     Indication: PSORIASIS
     Route: 058
     Dates: start: 20120822, end: 20120822
  4. STELARA [Suspect]
     Indication: PSORIASIS
     Route: 058
     Dates: start: 20120606, end: 20120606
  5. STELARA [Suspect]
     Indication: PSORIASIS
     Route: 058
     Dates: start: 20120314, end: 20120314
  6. STELARA [Suspect]
     Indication: PSORIASIS
     Route: 058
     Dates: start: 20130130, end: 20130130
  7. STELARA [Suspect]
     Indication: PSORIASIS
     Route: 058
     Dates: start: 20111005, end: 20111005
  8. STELARA [Suspect]
     Indication: PSORIASIS
     Route: 058
     Dates: start: 20110713, end: 20110713
  9. STELARA [Suspect]
     Indication: PSORIASIS
     Route: 058
     Dates: start: 20110615, end: 20110615
  10. STELARA [Suspect]
     Indication: PSORIASIS
     Route: 058
     Dates: start: 20130424, end: 20130424
  11. STELARA [Suspect]
     Indication: PSORIASIS
     Route: 058
     Dates: start: 20130710
  12. DRENISON [Suspect]
     Indication: PSORIASIS
     Route: 061
     Dates: start: 20120125
  13. MINOMYCIN [Suspect]
     Indication: ACNE
     Route: 048
     Dates: start: 20110810, end: 20120606
  14. DERMOVATE [Suspect]
     Indication: PSORIASIS
     Route: 061
     Dates: start: 20120125
  15. NEORAL [Concomitant]
     Indication: PSORIASIS
     Route: 048
     Dates: end: 20110712
  16. ALLEGRA [Concomitant]
     Indication: PSORIASIS
     Route: 048
     Dates: end: 20110809
  17. DOVONEX [Concomitant]
     Indication: PSORIASIS
     Route: 061
  18. GLYMESASON [Concomitant]
     Indication: PSORIASIS
     Route: 061
     Dates: start: 20111005
  19. UREPEARL [Concomitant]
     Indication: PSORIASIS
     Route: 061
     Dates: start: 20111005
  20. SATOSALBE [Concomitant]
     Indication: PSORIASIS
     Route: 061
     Dates: start: 20111005
  21. ACUATIM [Concomitant]
     Route: 061
  22. URINORM [Concomitant]
     Route: 048
     Dates: end: 20111227
  23. ZYLORIC [Concomitant]
     Route: 048
     Dates: start: 20111228
  24. TALION [Concomitant]
     Indication: PSORIASIS
     Route: 048
     Dates: start: 20110810
  25. FOSFOMYCIN CALCIUM [Concomitant]
     Route: 048
     Dates: start: 20110809
  26. CRAVIT [Concomitant]
     Indication: INFECTION
     Route: 048
     Dates: start: 20111130, end: 20111207
  27. LAMISIL [Concomitant]
     Route: 061
     Dates: start: 20120516

REACTIONS (1)
  - Acne [Not Recovered/Not Resolved]
